FAERS Safety Report 17038997 (Version 1)
Quarter: 2019Q4

REPORT INFORMATION
  Report Type: Spontaneous
  Country: US (occurrence: US)
  Receive Date: 20191115
  Receipt Date: 20191115
  Transmission Date: 20200122
  Serious: No
  Sender: FDA-Public Use
  Company Number: US-SA-2019SA307749

PATIENT
  Age: 57 Year
  Sex: Male

DRUGS (1)
  1. ALLEGRA-D [Suspect]
     Active Substance: FEXOFENADINE\PSEUDOEPHEDRINE
     Dosage: UNK
     Route: 065

REACTIONS (5)
  - Vision blurred [Recovered/Resolved]
  - Eye irritation [Unknown]
  - Visual impairment [Recovered/Resolved]
  - Photophobia [Unknown]
  - Insomnia [Unknown]
